FAERS Safety Report 4714048-0 (Version None)
Quarter: 2005Q3

REPORT INFORMATION
  Report Type: 
  Country: None (occurrence: None)
  Receive Date: 20050712
  Receipt Date: 20050620
  Transmission Date: 20060218
  Serious: Yes (Death)
  Sender: FDA-Public Use
  Company Number: 05KOR0138

PATIENT
  Age: 72 Year
  Sex: Female

DRUGS (7)
  1. AGGRASTAT [Suspect]
     Dosage: 31.5ML/DAILY
     Dates: start: 20050518, end: 20050518
  2. AGGRASTAT [Suspect]
     Dosage: 168ML/DAILY
     Dates: start: 20050519, end: 20050520
  3. AGGRASTAT [Suspect]
     Dosage: 147ML/DAILY
     Dates: start: 20050521, end: 20050521
  4. ASPIRIN [Concomitant]
  5. CLOPIDOGREL BISULFATE (CLOPIDOGREL BISULFATE) [Concomitant]
  6. PRAVASTATIN [Concomitant]
  7. RAMIPRIL [Concomitant]

REACTIONS (3)
  - ACUTE MYOCARDIAL INFARCTION [None]
  - ARTERIAL THROMBOSIS LIMB [None]
  - CORONARY ARTERY THROMBOSIS [None]
